FAERS Safety Report 21748376 (Version 10)
Quarter: 2024Q3

REPORT INFORMATION
  Report Type: Spontaneous
  Country: US (occurrence: US)
  Receive Date: 20221219
  Receipt Date: 20240813
  Transmission Date: 20241017
  Serious: No
  Sender: PFIZER
  Company Number: US-PFIZER INC-2020492677

PATIENT
  Age: 85 Year
  Sex: Female
  Weight: 49.887 kg

DRUGS (4)
  1. IBRANCE [Suspect]
     Active Substance: PALBOCICLIB
     Indication: Breast cancer
     Dosage: 28 DAY SUPPLY, TAKE 1 PO DAILY
     Route: 048
     Dates: start: 2018
  2. IBRANCE [Suspect]
     Active Substance: PALBOCICLIB
     Dosage: 1 DF, DAILY
     Route: 048
  3. IBRANCE [Suspect]
     Active Substance: PALBOCICLIB
     Dosage: TAKE ONE TABLET DAILY FOR 21 DAYS THEN ONE WK OFF
     Route: 048
  4. IBRANCE [Suspect]
     Active Substance: PALBOCICLIB
     Dosage: DAILY, TAKE ON DAYS 1-21 OF A 28-DAY CYCLE, TAKE WITH OR WITHOUT FOOD, OFF 7 DAYS, THEN RESTART
     Route: 048

REACTIONS (2)
  - Malaise [Not Recovered/Not Resolved]
  - Weight decreased [Unknown]
